FAERS Safety Report 5136241-8 (Version None)
Quarter: 2006Q4

REPORT INFORMATION
  Report Type: 
  Country: None (occurrence: None)
  Receive Date: 20061027
  Receipt Date: 20061019
  Transmission Date: 20070319
  Serious: Yes (Hospitalization)
  Sender: FDA-Public Use
  Company Number: SE-ROCHE-468031

PATIENT
  Age: 21 Year
  Sex: Female

DRUGS (2)
  1. PEGASYS [Suspect]
     Indication: HEPATITIS C
     Dosage: FORM REPORTED AS SOLUTION FOR INJECTION. DOSAGE REGIMEN REPORTED AS 1DFN DF N.
     Route: 058
     Dates: start: 20050414, end: 20050930
  2. COPEGUS [Suspect]
     Indication: HEPATITIS C
     Dosage: FORM REPORTED AS FILM-COATED TABLET. DOSAGE REGIMEN REPORTED AS 1DFN DF N.
     Route: 048
     Dates: start: 20050414, end: 20050930

REACTIONS (2)
  - ASTHMA [None]
  - PNEUMONIA [None]
